FAERS Safety Report 15817764 (Version 1)
Quarter: 2019Q1

REPORT INFORMATION
  Report Type: Spontaneous
  Country: DE (occurrence: DE)
  Receive Date: 20190113
  Receipt Date: 20190113
  Transmission Date: 20190417
  Serious: Yes (Life-Threatening, Hospitalization, Disabling)
  Sender: FDA-Public Use
  Company Number: DE-TEVA-2019-DE-997839

PATIENT
  Age: 72 Year
  Sex: Female

DRUGS (18)
  1. INSULIN PROTAPHAN [Concomitant]
     Dosage: 20 IU (INTERNATIONAL UNIT) DAILY;
  2. CALCIUM [Concomitant]
     Active Substance: CALCIUM
     Dosage: 400 MILLIGRAM DAILY;
  3. METOHEXAL SUCC [Concomitant]
     Active Substance: METOPROLOL SUCCINATE
     Dosage: 47.5 MILLIGRAM DAILY;
  4. URSOFALK [Concomitant]
     Active Substance: URSODIOL
     Dosage: 1000 MILLIGRAM DAILY;
  5. OPSUMIT [Concomitant]
     Active Substance: MACITENTAN
     Dosage: 10 MILLIGRAM DAILY;
  6. ALLOPURINOL HEUMANN [Concomitant]
     Dosage: 50 MILLIGRAM DAILY;
  7. PANTOPRAZOL [Concomitant]
     Active Substance: PANTOPRAZOLE SODIUM
     Dosage: 20 MILLIGRAM DAILY;
  8. MAGNESIUM [Concomitant]
     Active Substance: MAGNESIUM
     Dosage: 750 MILLIGRAM DAILY;
  9. TORASEMID AL [Concomitant]
     Active Substance: TORSEMIDE
  10. ASS RATIOPHARM [Concomitant]
     Active Substance: ASPIRIN
     Dosage: 100 MILLIGRAM DAILY;
  11. DUOTRAV [Concomitant]
     Active Substance: TIMOLOL MALEATE\TRAVOPROST
     Dosage: 1 DOSAGE FORMS DAILY;
  12. ACTRAPID [Concomitant]
     Active Substance: INSULIN HUMAN
  13. METFORMIN [Suspect]
     Active Substance: METFORMIN HYDROCHLORIDE
     Indication: TYPE 2 DIABETES MELLITUS
     Dosage: 1700 MILLIGRAM DAILY;
     Route: 048
  14. SPIRONOLACTON RATIOPHARM [Concomitant]
     Active Substance: SPIRONOLACTONE
     Dosage: 25 MILLIGRAM DAILY;
  15. XIPAMID AAA PHARMA [Concomitant]
     Dosage: 10 MILLIGRAM DAILY;
  16. PREDNISOLON ACIS [Concomitant]
     Active Substance: PREDNISOLONE
     Dosage: 75 MILLIGRAM DAILY;
  17. KALINOR - RETARD P [Concomitant]
     Dosage: 1800 MILLIGRAM DAILY;
  18. PRAVA TEVA [Concomitant]
     Active Substance: PRAVASTATIN SODIUM
     Dosage: 40 MILLIGRAM DAILY;

REACTIONS (5)
  - Chronic kidney disease [Unknown]
  - Lactic acidosis [Unknown]
  - Anuria [Unknown]
  - Acute kidney injury [Unknown]
  - Hyperkalaemia [Unknown]

NARRATIVE: CASE EVENT DATE: 20181128
